FAERS Safety Report 9527753 (Version 1)
Quarter: 2013Q1

REPORT INFORMATION
  Report Type: Spontaneous
  Country: US (occurrence: None)
  Receive Date: 20130314
  Receipt Date: 20130314
  Transmission Date: 20140127
  Serious: No
  Sender: FDA-Public Use
  Company Number: 1302USA007496

PATIENT
  Sex: Male

DRUGS (10)
  1. VICTRELIS [Suspect]
     Indication: HEPATITIS C
     Dosage: 800 MG, Q8H, ORAL
     Route: 048
     Dates: start: 20121015
  2. RIBAVIRIN [Suspect]
     Dosage: UNK, ORAL
     Route: 048
     Dates: start: 20120915
  3. PEGASYS [Suspect]
     Dosage: UNK
     Dates: start: 20120915
  4. VITAMIN B12 RATIOPHARM (CYANOCOBALAMIN) [Concomitant]
  5. FOLIC ACID (FOLIC ACID) [Concomitant]
  6. VITAMIN D (UNSPECIFIED) (VITAMIN D (UNSPECIFIED)) [Concomitant]
  7. VITAMIN E (VITAMIN E) [Concomitant]
  8. ATENOLOL (ATENOLOL [Concomitant]
  9. HYTRIN (TERAZOSIN HYDROCHLORIDE) [Concomitant]
  10. TRAZODONE HYDROCHLORIDE (TRAZODONE HYDROCHLORIDE) [Concomitant]

REACTIONS (8)
  - Feeling cold [None]
  - Rash pruritic [None]
  - White blood cell count decreased [None]
  - Platelet count decreased [None]
  - Dry skin [None]
  - Fatigue [None]
  - Dysgeusia [None]
  - Anaemia [None]
